FAERS Safety Report 9946034 (Version 2)
Quarter: 2014Q2

REPORT INFORMATION
  Report Type: Spontaneous
  Country: SE (occurrence: SE)
  Receive Date: 20140303
  Receipt Date: 20140524
  Transmission Date: 20141212
  Serious: Yes (Congenital Anomaly)
  Sender: FDA-Public Use
  Company Number: PHHY2014SE021511

PATIENT
  Age: 4 Month
  Sex: Female

DRUGS (1)
  1. GILENYA [Suspect]
     Dosage: 500 MG, QD
     Route: 064
     Dates: start: 20090325, end: 20100125

REACTIONS (3)
  - Lissencephaly [Not Recovered/Not Resolved]
  - Infantile spasms [Not Recovered/Not Resolved]
  - Maternal exposure before pregnancy [Not Recovered/Not Resolved]
